FAERS Safety Report 4919306-2 (Version None)
Quarter: 2006Q1

REPORT INFORMATION
  Report Type: 
  Country: None (occurrence: None)
  Receive Date: 20060113
  Receipt Date: 20051207
  Transmission Date: 20060701
  Serious: No
  Sender: FDA-Public Use
  Company Number: 2005SP004314

PATIENT
  Age: 76 Year
  Sex: Female
  Weight: 58.9676 kg

DRUGS (10)
  1. LUNESTA [Suspect]
     Indication: INITIAL INSOMNIA
     Dosage: 1 MG; HS; ORAL
     Route: 048
     Dates: start: 20051202, end: 20051205
  2. SIMVASTATIN [Concomitant]
  3. ALTACE [Concomitant]
  4. FUROSEMIDE [Concomitant]
  5. DIGITEX [Concomitant]
  6. AVANDIA [Concomitant]
  7. VERAPAMIL [Concomitant]
  8. METFORMIN [Concomitant]
  9. GLYBURIDE [Concomitant]
  10. AMBIEN [Concomitant]

REACTIONS (1)
  - DYSGEUSIA [None]
